FAERS Safety Report 17759553 (Version 15)
Quarter: 2022Q3

REPORT INFORMATION
  Report Type: Report from Study
  Country: CO (occurrence: CO)
  Receive Date: 20200508
  Receipt Date: 20220823
  Transmission Date: 20221026
  Serious: Yes (Death, Hospitalization)
  Sender: FDA-Public Use
  Company Number: NVSC2019CO000582

PATIENT
  Age: 68 Year
  Sex: Male
  Weight: 101 kg

DRUGS (4)
  1. ELTROMBOPAG OLAMINE [Suspect]
     Active Substance: ELTROMBOPAG OLAMINE
     Indication: Immune thrombocytopenia
     Dosage: 50 MG, QD
     Route: 048
  2. ELTROMBOPAG OLAMINE [Suspect]
     Active Substance: ELTROMBOPAG OLAMINE
     Dosage: UNK
     Route: 048
  3. ELTROMBOPAG OLAMINE [Suspect]
     Active Substance: ELTROMBOPAG OLAMINE
     Dosage: 75 MG, QD
     Route: 048
     Dates: start: 202202
  4. ELTROMBOPAG OLAMINE [Suspect]
     Active Substance: ELTROMBOPAG OLAMINE
     Dosage: 75 MG, QD
     Route: 048

REACTIONS (19)
  - Death [Fatal]
  - Platelet count abnormal [Unknown]
  - Inflammation [Unknown]
  - Fall [Unknown]
  - Dysstasia [Unknown]
  - Injury [Unknown]
  - Pulmonary haemorrhage [Unknown]
  - Mouth haemorrhage [Unknown]
  - Back injury [Unknown]
  - Purulence [Unknown]
  - Epistaxis [Unknown]
  - Platelet count decreased [Unknown]
  - Contusion [Unknown]
  - COVID-19 [Unknown]
  - Discouragement [Unknown]
  - Somnolence [Unknown]
  - Mood altered [Unknown]
  - Dizziness [Unknown]
  - Fatigue [Unknown]

NARRATIVE: CASE EVENT DATE: 20220731
